FAERS Safety Report 7688117-X (Version None)
Quarter: 2011Q3

REPORT INFORMATION
  Report Type: 
  Country: None (occurrence: None)
  Receive Date: 20110817
  Receipt Date: 20110805
  Transmission Date: 20111222
  Serious: Yes (Other)
  Sender: FDA-Public Use
  Company Number: CA-ELI_LILLY_AND_COMPANY-CA201108001996

PATIENT
  Sex: Male

DRUGS (10)
  1. HALDOL [Concomitant]
  2. ATIVAN [Concomitant]
  3. CLOZAPINE [Concomitant]
  4. ZYPREXA [Suspect]
     Dosage: 5 MG, QD
  5. BENZTROPINE MESYLATE [Concomitant]
  6. ZYPREXA [Suspect]
     Dosage: 2.5 MG, QD
  7. ZYPREXA [Suspect]
     Dosage: 10 MG, QD
  8. NOZINAN [Concomitant]
  9. FLUPENTHIXOL [Concomitant]
  10. ZYPREXA [Suspect]
     Dosage: 7.5 MG, QD

REACTIONS (3)
  - BLOOD TRIGLYCERIDES INCREASED [None]
  - MYOCARDIAL INFARCTION [None]
  - DIABETES MELLITUS [None]
